FAERS Safety Report 15492256 (Version 1)
Quarter: 2018Q4

REPORT INFORMATION
  Report Type: Spontaneous
  Country: ES (occurrence: ES)
  Receive Date: 20181012
  Receipt Date: 20181012
  Transmission Date: 20190205
  Serious: Yes (Hospitalization, Other)
  Sender: FDA-Public Use
  Company Number: ES-HETERO CORPORATE-2016HINLIT0070

PATIENT
  Age: 52 Year
  Sex: Male

DRUGS (6)
  1. MAGNESIUM HYDROXIDE. [Concomitant]
     Active Substance: MAGNESIUM HYDROXIDE
     Indication: DEPRESSION
  2. PYRIDOXINE [Concomitant]
     Active Substance: PYRIDOXINE
     Indication: DEPRESSION
     Route: 065
  3. LINEZOLID. [Interacting]
     Active Substance: LINEZOLID
     Indication: SKIN ULCER
  4. LINEZOLID. [Suspect]
     Active Substance: LINEZOLID
     Indication: PYREXIA
     Dosage: 600 MG, BID
     Route: 042
  5. OXITRIPTAN [Interacting]
     Active Substance: OXITRIPTAN
     Indication: DEPRESSION
     Dosage: 200 MG, TID
     Route: 065
  6. OXITRIPTAN [Interacting]
     Active Substance: OXITRIPTAN
     Indication: FATIGUE

REACTIONS (3)
  - Self-medication [Unknown]
  - Serotonin syndrome [Recovered/Resolved]
  - Drug interaction [Recovered/Resolved]
